FAERS Safety Report 8024338-4 (Version None)
Quarter: 2012Q1

REPORT INFORMATION
  Report Type: 
  Country: None (occurrence: None)
  Receive Date: 20120105
  Receipt Date: 20111222
  Transmission Date: 20120608
  Serious: Yes (Hospitalization)
  Sender: FDA-Public Use
  Company Number: PHEH2011US012315

PATIENT
  Sex: Female
  Weight: 59.1 kg

DRUGS (1)
  1. RECLAST [Suspect]
     Indication: OSTEOPOROSIS
     Dosage: YEARLY
     Route: 042
     Dates: start: 20110512

REACTIONS (5)
  - DYSPNOEA [None]
  - CHEST PAIN [None]
  - NASOPHARYNGITIS [None]
  - RIB FRACTURE [None]
  - COUGH [None]
